FAERS Safety Report 12872544 (Version 1)
Quarter: 2016Q4

REPORT INFORMATION
  Report Type: Spontaneous
  Country: GB (occurrence: GB)
  Receive Date: 20161021
  Receipt Date: 20161021
  Transmission Date: 20170207
  Serious: Yes (Other)
  Sender: FDA-Public Use
  Company Number: GB-ACCORD-044929

PATIENT
  Age: 59 Year
  Sex: Female

DRUGS (2)
  1. METHOTREXATE. [Suspect]
     Active Substance: METHOTREXATE
     Indication: PRODUCT USED FOR UNKNOWN INDICATION
  2. SIMPONI [Suspect]
     Active Substance: GOLIMUMAB
     Indication: PRODUCT USED FOR UNKNOWN INDICATION

REACTIONS (8)
  - Lower respiratory tract infection [Unknown]
  - Insomnia [Unknown]
  - Nerve injury [Unknown]
  - Blood pressure fluctuation [Unknown]
  - Intervertebral disc protrusion [Unknown]
  - Influenza [Unknown]
  - Spinal pain [Unknown]
  - Peripheral swelling [Unknown]
